FAERS Safety Report 9025228 (Version 1)
Quarter: 2013Q1

REPORT INFORMATION
  Report Type: Spontaneous
  Country: AU (occurrence: AU)
  Receive Date: 20130122
  Receipt Date: 20130122
  Transmission Date: 20140127
  Serious: Yes (Hospitalization)
  Sender: FDA-Public Use
  Company Number: AU-ROCHE-1182021

PATIENT
  Age: 29 Year
  Sex: Male

DRUGS (2)
  1. TORADOL [Suspect]
     Indication: MIGRAINE
     Route: 065
  2. ZOLOFT [Concomitant]
     Dosage: 3/7 PRIOR TO EVENT
     Route: 065

REACTIONS (1)
  - Priapism [Not Recovered/Not Resolved]
